FAERS Safety Report 8048530-8 (Version None)
Quarter: 2012Q1

REPORT INFORMATION
  Report Type: 
  Country: None (occurrence: None)
  Receive Date: 20120117
  Receipt Date: 20120111
  Transmission Date: 20120608
  Serious: No
  Sender: FDA-Public Use
  Company Number: US-PFIZER INC-2012008856

PATIENT
  Age: 55 Year
  Sex: Male

DRUGS (1)
  1. CELEBREX [Suspect]
     Dosage: 400 MG, 1X/DAY
     Route: 048
     Dates: start: 20111101, end: 20111101

REACTIONS (2)
  - JOINT SWELLING [None]
  - DYSURIA [None]
